FAERS Safety Report 7559602-6 (Version None)
Quarter: 2011Q2

REPORT INFORMATION
  Report Type: 
  Country: None (occurrence: None)
  Receive Date: 20110525
  Receipt Date: 20110214
  Transmission Date: 20111010
  Serious: No
  Sender: FDA-Public Use
  Company Number: 323690

PATIENT
  Sex: Female

DRUGS (2)
  1. VICTOZA [Suspect]
     Indication: TYPE 2 DIABETES MELLITUS
     Dates: start: 20110209
  2. VICTOZA [Suspect]
     Indication: WEIGHT DECREASED
     Dates: start: 20110209

REACTIONS (4)
  - DIARRHOEA [None]
  - NAUSEA [None]
  - BRONCHITIS [None]
  - DECREASED APPETITE [None]
